FAERS Safety Report 15058492 (Version 1)
Quarter: 2018Q2

REPORT INFORMATION
  Report Type: Spontaneous
  Country: BE (occurrence: BE)
  Receive Date: 20180625
  Receipt Date: 20180625
  Transmission Date: 20180711
  Serious: Yes (Other)
  Sender: FDA-Public Use
  Company Number: PHHY2018BE026856

PATIENT
  Age: 5 Day
  Sex: Male

DRUGS (1)
  1. RANITIDINE. [Suspect]
     Active Substance: RANITIDINE
     Indication: POOR FEEDING INFANT
     Dosage: 4 X 0.5 MG/KG/DAY STARTED ON DAY 3 OF LIFE
     Route: 065

REACTIONS (1)
  - Thrombocytopenia neonatal [Recovered/Resolved]
